FAERS Safety Report 10233187 (Version 1)
Quarter: 2014Q2

REPORT INFORMATION
  Report Type: Spontaneous
  Country: JP (occurrence: None)
  Receive Date: 20140610
  Receipt Date: 20140610
  Transmission Date: 20141212
  Serious: Yes (Other)
  Sender: FDA-Public Use
  Company Number: JP-ALKEM-000602

PATIENT
  Age: 51 Year
  Sex: Female

DRUGS (3)
  1. MYCOPHENOLATE MOFETIL [Suspect]
     Indication: RENAL TRANSPLANT
  2. METHYLPREDNISOLONE [Suspect]
     Indication: RENAL TRANSPLANT
  3. TACROLIMUS [Suspect]
     Indication: RENAL TRANSPLANT

REACTIONS (9)
  - Tubulointerstitial nephritis [None]
  - Glomerulonephritis acute [None]
  - Streptococcal infection [None]
  - Atypical mycobacterial infection [None]
  - JC virus infection [None]
  - Kidney fibrosis [None]
  - Renal tubular atrophy [None]
  - Blood immunoglobulin G decreased [None]
  - Cytomegalovirus infection [None]
